FAERS Safety Report 16168519 (Version 6)
Quarter: 2019Q3

REPORT INFORMATION
  Report Type: Report from Study
  Country: US (occurrence: US)
  Receive Date: 20190408
  Receipt Date: 20190715
  Transmission Date: 20191004
  Serious: Yes (Hospitalization)
  Sender: FDA-Public Use
  Company Number: US-ROCHE-2290512

PATIENT
  Age: 35 Year
  Sex: Female
  Weight: 66 kg

DRUGS (2)
  1. SKYLA [Concomitant]
     Active Substance: LEVONORGESTREL
     Dosage: INTRAUTERINE DEVICE, DOSE: 1, UNIT: OTHER
     Route: 015
     Dates: start: 20160301
  2. OCRELIZUMAB. [Suspect]
     Active Substance: OCRELIZUMAB
     Indication: RELAPSING MULTIPLE SCLEROSIS
     Dosage: TWO 300 MG INFUSION ON DAYS 1 AND 15, THEN AS SINGLE INFUSION OF 600 MG ON WEEKS 24 AND 48.?DATE OF
     Route: 042
     Dates: start: 20161130

REACTIONS (2)
  - Neutropenia [Recovered/Resolved]
  - Pharyngitis [Not Recovered/Not Resolved]

NARRATIVE: CASE EVENT DATE: 20190324
